FAERS Safety Report 9178945 (Version 1)
Quarter: 2012Q4

REPORT INFORMATION
  Report Type: 
  Country: US (occurrence: US)
  Receive Date: 20121029
  Receipt Date: 20121029
  Transmission Date: 20130627
  Serious: No
  Sender: FDA-Public Use
  Company Number: US-009507513-2012SP031685

PATIENT
  Sex: Female

DRUGS (1)
  1. SYLATRON [Suspect]
     Indication: MALIGNANT MELANOMA STAGE III
     Dosage: 6 Microgram per kilogram=510mcg, qw
     Route: 058
     Dates: start: 20120313, end: 20120313

REACTIONS (1)
  - Crying [Recovering/Resolving]
